FAERS Safety Report 9264824 (Version 1)
Quarter: 2013Q2

REPORT INFORMATION
  Report Type: Spontaneous
  Country: US (occurrence: None)
  Receive Date: 20130430
  Receipt Date: 20130430
  Transmission Date: 20140414
  Serious: Yes (Disabling)
  Sender: FDA-Public Use
  Company Number: None

PATIENT
  Age: 79 Year
  Sex: Female
  Weight: 68.04 kg

DRUGS (1)
  1. LEVOFLOXACIN [Suspect]
     Indication: BRONCHITIS
     Dosage: 250 MG 1 TABLET A DAY # 2780
     Dates: start: 20120707, end: 20120714

REACTIONS (7)
  - Abdominal distension [None]
  - Diarrhoea [None]
  - Arthralgia [None]
  - Arthralgia [None]
  - Gait disturbance [None]
  - Anorectal disorder [None]
  - Swelling [None]
